FAERS Safety Report 25892898 (Version 1)
Quarter: 2025Q4

REPORT INFORMATION
  Report Type: Report from Study
  Country: US (occurrence: US)
  Receive Date: 20251007
  Receipt Date: 20251007
  Transmission Date: 20260117
  Serious: Yes (Hospitalization)
  Sender: ABBVIE
  Company Number: US-ABBVIE-6316345

PATIENT
  Age: 59 Year
  Sex: Male
  Weight: 115 kg

DRUGS (1)
  1. SKYRIZI [Suspect]
     Active Substance: RISANKIZUMAB-RZAA
     Indication: Psoriasis
     Route: 058
     Dates: start: 20250127, end: 20250801

REACTIONS (16)
  - Cardiac failure congestive [Recovering/Resolving]
  - Peripheral swelling [Recovered/Resolved]
  - Endocarditis viral [Not Recovered/Not Resolved]
  - Oropharyngeal pain [Not Recovered/Not Resolved]
  - Cough [Not Recovered/Not Resolved]
  - Respiratory tract congestion [Not Recovered/Not Resolved]
  - Influenza [Not Recovered/Not Resolved]
  - Dyspnoea [Unknown]
  - Joint swelling [Recovered/Resolved]
  - Scrotal swelling [Recovering/Resolving]
  - Asthenia [Not Recovered/Not Resolved]
  - Upper respiratory tract infection [Recovering/Resolving]
  - Blood cholesterol increased [Unknown]
  - Pain [Unknown]
  - Weight increased [Unknown]
  - Abdominal distension [Unknown]

NARRATIVE: CASE EVENT DATE: 20250101
